FAERS Safety Report 5314656-2 (Version None)
Quarter: 2007Q2

REPORT INFORMATION
  Report Type: 
  Country: None (occurrence: None)
  Receive Date: 20070426
  Receipt Date: 20070412
  Transmission Date: 20071010
  Serious: Yes (Hospitalization, Other)
  Sender: FDA-Public Use
  Company Number: 2007BI003100

PATIENT
  Age: 47 Year
  Sex: Male

DRUGS (12)
  1. AVONEX [Suspect]
     Indication: MULTIPLE SCLEROSIS
     Dosage: 30 UG; QW; IM
     Route: 030
     Dates: start: 20050401, end: 20060615
  2. FLUCONAZOLE [Concomitant]
  3. GLUCOPHAGE [Concomitant]
  4. LYRICA [Concomitant]
  5. NEURONTIN [Concomitant]
  6. DETROL LA [Concomitant]
  7. PREDNISONE TAB [Concomitant]
  8. MULTI-VITAMIN [Concomitant]
  9. TEMAZEPAM [Concomitant]
  10. ACETAMINOPHEN [Concomitant]
  11. HYDROCODONE [Concomitant]
  12. METOCLOPRAMIDE [Concomitant]

REACTIONS (9)
  - APLASTIC ANAEMIA [None]
  - BONE MARROW FAILURE [None]
  - COORDINATION ABNORMAL [None]
  - DIABETES MELLITUS [None]
  - DRUG INEFFECTIVE [None]
  - LYMPHOPROLIFERATIVE DISORDER [None]
  - MALAISE [None]
  - MYELODYSPLASTIC SYNDROME [None]
  - OEDEMA PERIPHERAL [None]
